FAERS Safety Report 6439338-5 (Version None)
Quarter: 2009Q4

REPORT INFORMATION
  Report Type: 
  Country: None (occurrence: None)
  Receive Date: 20091113
  Receipt Date: 20091104
  Transmission Date: 20100525
  Serious: Yes (Hospitalization)
  Sender: FDA-Public Use
  Company Number: AT-ASTRAZENECA-2009SE24113

PATIENT
  Age: 935 Month
  Sex: Female
  Weight: 95 kg

DRUGS (6)
  1. ARIMIDEX [Suspect]
     Indication: BREAST CANCER
     Route: 048
     Dates: start: 20080616
  2. BISOPROLOL [Concomitant]
     Indication: HYPERTENSION
     Route: 048
     Dates: start: 20090701
  3. FUROSEMIDE [Concomitant]
     Indication: HYPERTENSION
     Route: 048
     Dates: start: 20090701
  4. DICLOFENAC [Concomitant]
     Indication: BACK PAIN
     Route: 048
     Dates: start: 20090701
  5. FLUVASTATIN [Concomitant]
     Indication: HYPERCHOLESTEROLAEMIA
     Route: 048
     Dates: start: 20090701
  6. CIPROFLOXACIN [Concomitant]
     Indication: CYSTITIS
     Route: 048
     Dates: start: 20091015, end: 20091027

REACTIONS (1)
  - ATRIAL FIBRILLATION [None]
